FAERS Safety Report 15027409 (Version 1)
Quarter: 2018Q2

REPORT INFORMATION
  Report Type: Spontaneous
  Country: FR (occurrence: FR)
  Receive Date: 20180619
  Receipt Date: 20180619
  Transmission Date: 20180711
  Serious: No
  Sender: FDA-Public Use
  Company Number: FR-ROCHE-2141863

PATIENT
  Sex: Male

DRUGS (3)
  1. OCREVUS [Suspect]
     Active Substance: OCRELIZUMAB
     Indication: PRIMARY PROGRESSIVE MULTIPLE SCLEROSIS
     Dosage: HE RECEIVED HIS SECOND INFUSION ON 12/FEB/2018
     Route: 065
  2. FAMPYRA [Concomitant]
     Active Substance: DALFAMPRIDINE
  3. BIOTIN [Concomitant]
     Active Substance: BIOTIN

REACTIONS (2)
  - Urinary tract infection [Unknown]
  - Fatigue [Unknown]

NARRATIVE: CASE EVENT DATE: 20180212
